FAERS Safety Report 4862666-1 (Version None)
Quarter: 2005Q4

REPORT INFORMATION
  Report Type: 
  Country: None (occurrence: None)
  Receive Date: 20051221
  Receipt Date: 20050829
  Transmission Date: 20060501
  Serious: Yes (Disabling)
  Sender: FDA-Public Use
  Company Number: US-MERCK-0508USA04799

PATIENT
  Age: 46 Year
  Sex: Female
  Weight: 79 kg

DRUGS (1)
  1. VIOXX [Suspect]
     Indication: PAIN
     Route: 048
     Dates: start: 20020307, end: 20021101

REACTIONS (12)
  - ALOPECIA [None]
  - ANXIETY [None]
  - CARDIAC DISORDER [None]
  - CARDIAC FLUTTER [None]
  - CHEST PAIN [None]
  - DEPRESSION [None]
  - DIABETES MELLITUS [None]
  - DYSPNOEA [None]
  - HYPERTENSION [None]
  - NERVOUS SYSTEM DISORDER [None]
  - PAIN [None]
  - STRESS [None]
